FAERS Safety Report 9323867 (Version 1)
Quarter: 2013Q2

REPORT INFORMATION
  Report Type: Spontaneous
  Country: US (occurrence: US)
  Receive Date: 20130603
  Receipt Date: 20130603
  Transmission Date: 20140414
  Serious: Yes (Other)
  Sender: FDA-Public Use
  Company Number: US-BAYER-2013-065675

PATIENT
  Age: 31 Year
  Sex: Female

DRUGS (6)
  1. BETASERON [Suspect]
     Dosage: 0.25 MG, QOD
     Route: 058
  2. LEXAPRO [Concomitant]
     Dosage: 5 MG, UNK
  3. TOPAMAX [Concomitant]
     Dosage: 25 MG, UNK
  4. MODAFINIL [Concomitant]
     Dosage: 100 MG, UNK
  5. IBUPROFEN [Concomitant]
     Dosage: 200 MG, UNK
  6. IMITREX [Concomitant]
     Dosage: 25 MG, UNK

REACTIONS (2)
  - Multiple sclerosis relapse [Unknown]
  - Hypoaesthesia [Unknown]
